FAERS Safety Report 7046096-2 (Version None)
Quarter: 2010Q4

REPORT INFORMATION
  Report Type: 
  Country: None (occurrence: None)
  Receive Date: 20101014
  Receipt Date: 20101011
  Transmission Date: 20110411
  Serious: Yes (Other)
  Sender: FDA-Public Use
  Company Number: CHPA2010US16019

PATIENT
  Age: 60 Year
  Sex: Female

DRUGS (1)
  1. PREVACID 24 HR [Suspect]
     Indication: GASTRIC DISORDER
     Dosage: UNK, UNK
     Route: 048
     Dates: start: 20100101

REACTIONS (4)
  - FALL [None]
  - HAND FRACTURE [None]
  - INTENTIONAL DRUG MISUSE [None]
  - OFF LABEL USE [None]
